FAERS Safety Report 21052348 (Version 1)
Quarter: 2022Q3

REPORT INFORMATION
  Report Type: Spontaneous
  Country: US (occurrence: None)
  Receive Date: 20220706
  Receipt Date: 20220706
  Transmission Date: 20221027
  Serious: No
  Sender: FDA-Public Use
  Company Number: None

PATIENT
  Age: 66 Year
  Sex: Female

DRUGS (1)
  1. AMBRISENTAN [Suspect]
     Active Substance: AMBRISENTAN
     Indication: Pulmonary arterial hypertension
     Dosage: FREQUENCY : DAILY;?
     Route: 048

REACTIONS (7)
  - Fatigue [None]
  - Dyspnoea [None]
  - Dyspnoea exertional [None]
  - Apathy [None]
  - Joint swelling [None]
  - Dyspepsia [None]
  - Psychiatric symptom [None]

NARRATIVE: CASE EVENT DATE: 20220705
